FAERS Safety Report 4694440-3 (Version None)
Quarter: 2005Q2

REPORT INFORMATION
  Report Type: 
  Country: None (occurrence: None)
  Receive Date: 20050620
  Receipt Date: 20050606
  Transmission Date: 20051028
  Serious: Yes (Death, Hospitalization)
  Sender: FDA-Public Use
  Company Number: FR-JNJFOC-20050604611

PATIENT
  Age: 70 Year
  Sex: Female

DRUGS (11)
  1. TOPALGIC [Suspect]
     Route: 049
  2. DI-ANTALVIC [Suspect]
     Route: 049
  3. DI-ANTALVIC [Suspect]
     Route: 049
  4. TRACLEER [Suspect]
     Indication: PULMONARY HYPERTENSION
     Route: 049
  5. CLONAZEPAM [Suspect]
     Indication: EPILEPSY
     Route: 049
  6. PLAVIX [Suspect]
     Route: 049
  7. VASTEN [Suspect]
     Indication: LIPID METABOLISM DISORDER
     Route: 049
  8. CORVASAL [Concomitant]
     Route: 049
  9. PYOSTACINE [Concomitant]
     Route: 065
  10. LASILIX [Concomitant]
     Route: 065
  11. FONZYLANE [Concomitant]
     Route: 065

REACTIONS (2)
  - HEPATOCELLULAR DAMAGE [None]
  - SEPTIC SHOCK [None]
